FAERS Safety Report 4429139-1 (Version None)
Quarter: 2004Q3

REPORT INFORMATION
  Report Type: 
  Country: None (occurrence: None)
  Receive Date: 20040726
  Receipt Date: 20040310
  Transmission Date: 20050211
  Serious: No
  Sender: FDA-Public Use
  Company Number: USA040361623

PATIENT
  Age: 78 Year
  Sex: Female

DRUGS (4)
  1. FORTEO [Suspect]
  2. CALINATAL [Concomitant]
  3. EXELON (RIVATATIGMINE TARTRATE) [Concomitant]
  4. NEXIUM (ESOMEPTAZOLE) [Concomitant]

REACTIONS (2)
  - AGGRESSION [None]
  - DEMENTIA ALZHEIMER'S TYPE [None]
